FAERS Safety Report 8102629-6 (Version None)
Quarter: 2011Q4

REPORT INFORMATION
  Report Type: 
  Country: None (occurrence: None)
  Receive Date: 20111222
  Receipt Date: 20110906
  Transmission Date: 20120403
  Serious: Yes (Hospitalization)
  Sender: FDA-Public Use
  Company Number: UTC-009996

PATIENT
  Age: 77 Year
  Sex: Female
  Weight: 54.5 kg

DRUGS (4)
  1. TYVASO [Suspect]
     Indication: PULMONARY ARTERIAL HYPERTENSION
     Dosage: 18-54 MICROGRAMS (4 IN 1 D), NHALATION
     Route: 055
     Dates: start: 20091127
  2. REVATIO [Concomitant]
  3. DIURETICS (DIURETICS) [Concomitant]
  4. COUMADIN [Concomitant]

REACTIONS (1)
  - PELVIC FRACTURE [None]
